FAERS Safety Report 16243005 (Version 1)
Quarter: 2019Q2

REPORT INFORMATION
  Report Type: Spontaneous
  Country: US (occurrence: US)
  Receive Date: 20190425
  Receipt Date: 20190425
  Transmission Date: 20190711
  Serious: Yes (Other)
  Sender: FDA-Public Use
  Company Number: None

PATIENT
  Age: 63 Year
  Sex: Male
  Weight: 90.8 kg

DRUGS (2)
  1. IRINOTECAN [Suspect]
     Active Substance: IRINOTECAN
  2. LEUCOVORIN. [Suspect]
     Active Substance: LEUCOVORIN

REACTIONS (2)
  - Hypoaesthesia [None]
  - Dyspnoea [None]

NARRATIVE: CASE EVENT DATE: 20190425
